FAERS Safety Report 6050582-1 (Version None)
Quarter: 2009Q1

REPORT INFORMATION
  Report Type: 
  Country: None (occurrence: None)
  Receive Date: 20090126
  Receipt Date: 20090114
  Transmission Date: 20090719
  Serious: Yes (Hospitalization)
  Sender: FDA-Public Use
  Company Number: DE-PFIZER INC-2009155350

PATIENT

DRUGS (9)
  1. AMLODIPINE BESILATE [Suspect]
     Indication: HYPERTENSION
     Dosage: 5 MG, 2X/DAY
     Route: 048
  2. LISINOPRIL AND HYDROCHLOROTHIAZIDE [Interacting]
     Indication: HYPERTENSION
     Dosage: 15 MG/18.75 MG DAILY
     Route: 048
     Dates: end: 20080617
  3. METOPROLOL [Interacting]
     Indication: HYPERTENSION
     Dosage: 100 MG, 2X/DAY
     Route: 048
  4. MOXONIDINE [Interacting]
     Indication: HYPERTENSION
     Dosage: 0.2 MG, 2X/DAY
  5. NITROGLYCERIN [Interacting]
     Indication: HYPERTENSION
     Dosage: 0.41 MG, 1X/DAY
     Route: 002
     Dates: end: 20080612
  6. ASPIRIN [Concomitant]
     Indication: INFARCTION
     Dosage: 100 MG, 1X/DAY
     Route: 048
     Dates: start: 20010101
  7. KEPPRA [Concomitant]
     Indication: INFARCTION
     Dosage: 500 MG, 2X/DAY
     Route: 048
  8. PANTOZOL [Concomitant]
     Indication: PROPHYLAXIS
     Dosage: 20 MG, 1X/DAY
     Route: 048
  9. SIMVASTATIN [Concomitant]
     Indication: THROMBOSIS PROPHYLAXIS
     Dosage: 20 MG, 1X/DAY
     Route: 048

REACTIONS (2)
  - DRUG INTERACTION [None]
  - SYNCOPE [None]
